FAERS Safety Report 23219450 (Version 1)
Quarter: 2023Q4

REPORT INFORMATION
  Report Type: Spontaneous
  Country: US (occurrence: US)
  Receive Date: 20231122
  Receipt Date: 20231122
  Transmission Date: 20240110
  Serious: Yes (Disabling)
  Sender: FDA-Public Use
  Company Number: US-PFIZER INC-202300373244

PATIENT
  Age: 67 Year
  Sex: Female
  Weight: 58.967 kg

DRUGS (2)
  1. INLYTA [Suspect]
     Active Substance: AXITINIB
     Indication: Renal cancer
     Dosage: 5 MG, 2X/DAY (5MG IN THE MORNING AND IN THE EVENING BY MOUTH/ 10MG  FOR 2 WEEKS AND TOOK 10 DOSES)
     Route: 048
     Dates: end: 20231106
  2. INLYTA [Suspect]
     Active Substance: AXITINIB
     Dosage: 3 MG, 2X/DAY (MORNING AND AT NIGHT)
     Dates: start: 20231114

REACTIONS (7)
  - Abdominal pain [Recovering/Resolving]
  - Burning sensation [Recovering/Resolving]
  - Insomnia [Not Recovered/Not Resolved]
  - Decreased appetite [Not Recovered/Not Resolved]
  - Pain [Not Recovered/Not Resolved]
  - Loss of personal independence in daily activities [Not Recovered/Not Resolved]
  - Intentional product misuse [Unknown]
